FAERS Safety Report 5491076-1 (Version None)
Quarter: 2007Q4

REPORT INFORMATION
  Report Type: 
  Country: None (occurrence: None)
  Receive Date: 20071019
  Receipt Date: 20071009
  Transmission Date: 20080405
  Serious: Yes (Other)
  Sender: FDA-Public Use
  Company Number: US-PFIZER INC-2007056241

PATIENT
  Sex: Male

DRUGS (3)
  1. CHANTIX [Suspect]
  2. WELLBUTRIN [Concomitant]
  3. ANDROGEL [Concomitant]

REACTIONS (2)
  - ANXIETY [None]
  - DEPRESSION [None]
